FAERS Safety Report 17259659 (Version 1)
Quarter: 2020Q1

REPORT INFORMATION
  Report Type: Spontaneous
  Country: US (occurrence: US)
  Receive Date: 20200110
  Receipt Date: 20200110
  Transmission Date: 20200409
  Serious: No
  Sender: FDA-Public Use
  Company Number: US-ALKERMES INC.-ALK-2019-006022

PATIENT
  Age: 36 Year
  Sex: Male

DRUGS (4)
  1. VIVITROL [Suspect]
     Active Substance: NALTREXONE
     Indication: ALCOHOLISM
     Dosage: 380 MG, QMO
     Route: 030
     Dates: start: 20191111, end: 20191111
  2. ANTIDEPRESSANTS [Concomitant]
     Active Substance: UNSPECIFIED INGREDIENT
     Indication: DEPRESSION
     Dosage: UNK
  3. VIVITROL [Suspect]
     Active Substance: NALTREXONE
     Dosage: 380 MG, QMO
     Route: 030
  4. SEROQUEL [Concomitant]
     Active Substance: QUETIAPINE FUMARATE
     Indication: SLEEP DISORDER
     Dosage: UNK

REACTIONS (16)
  - Dysphagia [Recovered/Resolved]
  - Injection site reaction [Recovered/Resolved]
  - Pneumonia [Recovered/Resolved]
  - Muscle spasms [Recovering/Resolving]
  - Arthralgia [Recovering/Resolving]
  - Vomiting [Recovering/Resolving]
  - Depressed mood [Recovering/Resolving]
  - Decreased appetite [Recovering/Resolving]
  - Hypersensitivity [Recovering/Resolving]
  - Toothache [Recovering/Resolving]
  - Headache [Recovered/Resolved]
  - Somnolence [Recovering/Resolving]
  - Insomnia [Recovering/Resolving]
  - Nausea [Recovered/Resolved]
  - Hepatic function abnormal [Recovering/Resolving]
  - Dizziness [Recovering/Resolving]
